FAERS Safety Report 9258468 (Version 1)
Quarter: 2013Q2

REPORT INFORMATION
  Report Type: Spontaneous
  Country: US (occurrence: None)
  Receive Date: 20130425
  Receipt Date: 20130425
  Transmission Date: 20140414
  Serious: Yes (Death)
  Sender: FDA-Public Use
  Company Number: None

PATIENT
  Age: 61 Year
  Sex: Male
  Weight: 108.86 kg

DRUGS (1)
  1. LINAGLIPTIN [Suspect]
     Dosage: 2 MONTHS
     Dates: start: 20130204, end: 20130416

REACTIONS (4)
  - Pulseless electrical activity [None]
  - Cardio-respiratory arrest [None]
  - Pancreatitis haemorrhagic [None]
  - Peritoneal haemorrhage [None]
